FAERS Safety Report 13178508 (Version 3)
Quarter: 2017Q2

REPORT INFORMATION
  Report Type: Report from Study
  Country: US (occurrence: US)
  Receive Date: 20170202
  Receipt Date: 20170506
  Transmission Date: 20170830
  Serious: No
  Sender: FDA-Public Use
  Company Number: PHEH2017US003232

PATIENT
  Age: 57 Year
  Sex: Male

DRUGS (3)
  1. COSENTYX [Suspect]
     Active Substance: SECUKINUMAB
     Dosage: 300 MG, (150 MG ONE WEEK AND THEN 150 MG NEXT WEEK)
     Route: 060
     Dates: start: 20170126
  2. COSENTYX [Suspect]
     Active Substance: SECUKINUMAB
     Indication: PSORIASIS
     Dosage: 300 MG,
     Route: 060
     Dates: start: 20161001
  3. COSENTYX [Suspect]
     Active Substance: SECUKINUMAB
     Dosage: 300 MG, (150 MG ONE WEEK AND THEN 150 MG NEXT WEEK)
     Route: 060

REACTIONS (6)
  - Incorrect route of drug administration [Unknown]
  - Dry skin [Unknown]
  - Dyspnoea [Unknown]
  - Skin discolouration [Unknown]
  - Rash erythematous [Unknown]
  - Inappropriate schedule of drug administration [Unknown]

NARRATIVE: CASE EVENT DATE: 20161001
